FAERS Safety Report 4572999-4 (Version None)
Quarter: 2005Q1

REPORT INFORMATION
  Report Type: 
  Country: None (occurrence: None)
  Receive Date: 20050203
  Receipt Date: 20050121
  Transmission Date: 20050727
  Serious: Yes (Disabling)
  Sender: FDA-Public Use
  Company Number: 2004-0007333

PATIENT
  Age: 32 Year
  Sex: Female

DRUGS (4)
  1. VIREAD [Suspect]
     Indication: HIV INFECTION
     Dosage: 300 MG 1 IN 1 D ORAL
     Route: 048
     Dates: start: 20040717
  2. REYATAZ [Suspect]
     Indication: HIV INFECTION
     Dosage: 300 MG 1 IN 1 D ORAL
     Route: 048
     Dates: start: 20040717
  3. NORVIR [Concomitant]
  4. EPIVIR [Concomitant]

REACTIONS (5)
  - ERYTHEMA [None]
  - HYPERBILIRUBINAEMIA [None]
  - JAUNDICE [None]
  - NAIL DISORDER [None]
  - SKIN OEDEMA [None]
